FAERS Safety Report 8239763-6 (Version None)
Quarter: 2012Q1

REPORT INFORMATION
  Report Type: 
  Country: None (occurrence: None)
  Receive Date: 20120327
  Receipt Date: 20120327
  Transmission Date: 20120608
  Serious: Yes (Life-Threatening, Hospitalization)
  Sender: FDA-Public Use
  Company Number: None

PATIENT
  Age: 57 Year
  Sex: Male
  Weight: 60.8 kg

DRUGS (1)
  1. BUPROPION HCL [Suspect]
     Indication: DEPRESSION
     Dosage: 150 MG TID PO
     Route: 048
     Dates: start: 20070824, end: 20100704

REACTIONS (6)
  - ALCOHOL USE [None]
  - AGITATION [None]
  - FAECAL INCONTINENCE [None]
  - URINARY INCONTINENCE [None]
  - CONVULSION [None]
  - AGGRESSION [None]
